FAERS Safety Report 5890565-5 (Version None)
Quarter: 2008Q3

REPORT INFORMATION
  Report Type: 
  Country: None (occurrence: None)
  Receive Date: 20080922
  Receipt Date: 20080822
  Transmission Date: 20090109
  Serious: No
  Sender: FDA-Public Use
  Company Number: MA-BAYER-200832198NA

PATIENT
  Age: 63 Year
  Sex: Male

DRUGS (2)
  1. AVELOX [Suspect]
     Indication: DRUG USE FOR UNKNOWN INDICATION
     Dosage: UNIT DOSE: 400 MG
     Route: 048
     Dates: start: 20080801
  2. PREDNISONE TAB [Concomitant]
     Dosage: TOTAL DAILY DOSE: 40 MG

REACTIONS (3)
  - ARTHRALGIA [None]
  - ARTHRITIS [None]
  - JOINT RANGE OF MOTION DECREASED [None]
